FAERS Safety Report 4316144-9 (Version None)
Quarter: 2004Q1

REPORT INFORMATION
  Report Type: 
  Country: None (occurrence: None)
  Receive Date: 20040311
  Receipt Date: 20040311
  Transmission Date: 20041129
  Serious: Yes (Life-Threatening)
  Sender: FDA-Public Use
  Company Number: None

PATIENT
  Age: 40 Year
  Sex: Male
  Weight: 70 kg

DRUGS (11)
  1. CYTARABINE [Suspect]
     Indication: MENINGITIS
     Dosage: 50 MG Q2WEEKS OTHER
     Route: 050
     Dates: start: 20040122, end: 20040221
  2. ANTIBIOTICS [Concomitant]
  3. DEXAMETHASONE [Concomitant]
  4. TENOFIVIR [Concomitant]
  5. EVAFIRENZ [Concomitant]
  6. LAMIVUDINE [Concomitant]
  7. ATOVOQONE [Concomitant]
  8. FAMICYCLOVIR [Concomitant]
  9. CEFTRIAXONE [Concomitant]
  10. VANCOMYCIN [Concomitant]
  11. EFAVIRENZ [Concomitant]

REACTIONS (8)
  - DELIRIUM [None]
  - ENCEPHALOPATHY [None]
  - GENERAL PHYSICAL HEALTH DETERIORATION [None]
  - HYPONATRAEMIA [None]
  - INAPPROPRIATE ANTIDIURETIC HORMONE SECRETION [None]
  - NEUTROPENIA [None]
  - PYREXIA [None]
  - SEPSIS [None]
